FAERS Safety Report 6141015-5 (Version None)
Quarter: 2009Q2

REPORT INFORMATION
  Report Type: 
  Country: None (occurrence: None)
  Receive Date: 20090402
  Receipt Date: 20090327
  Transmission Date: 20091009
  Serious: Yes (Hospitalization)
  Sender: FDA-Public Use
  Company Number: US-BAYER-200913535NA

PATIENT
  Age: 17 Year
  Sex: Female
  Weight: 70 kg

DRUGS (2)
  1. YASMIN [Suspect]
     Indication: CONTRACEPTION
     Route: 048
     Dates: end: 20080101
  2. LAMICTAL [Concomitant]

REACTIONS (1)
  - PREGNANCY ON ORAL CONTRACEPTIVE [None]
